FAERS Safety Report 7036131-X (Version None)
Quarter: 2010Q4

REPORT INFORMATION
  Report Type: 
  Country: None (occurrence: None)
  Receive Date: 20101008
  Receipt Date: 20100115
  Transmission Date: 20110411
  Serious: No
  Sender: FDA-Public Use
  Company Number: US-BRISTOL-MYERS SQUIBB COMPANY-14943716

PATIENT
  Age: 59 Year
  Sex: Female

DRUGS (2)
  1. AVAPRO [Suspect]
     Indication: DIABETIC COMPLICATION
     Dates: start: 20090101
  2. METFORMIN HCL [Suspect]

REACTIONS (2)
  - DIARRHOEA [None]
  - DIZZINESS [None]
